FAERS Safety Report 5027627-0 (Version None)
Quarter: 2006Q2

REPORT INFORMATION
  Report Type: 
  Country: None (occurrence: None)
  Receive Date: 20060616
  Receipt Date: 20060609
  Transmission Date: 20061013
  Serious: Yes (Other)
  Sender: FDA-Public Use
  Company Number: US-JNJFOC-20060602501

PATIENT
  Sex: Female
  Weight: 52.16 kg

DRUGS (6)
  1. ELMIRON [Suspect]
     Route: 048
  2. ELMIRON [Suspect]
     Route: 048
  3. ELMIRON [Suspect]
     Indication: CYSTITIS INTERSTITIAL
     Dosage: 100-MG TABLETS TAKEN 3X/DAY
     Route: 048
  4. SINUS MEDICATIONS [Concomitant]
     Route: 065
  5. SINUS MEDICATIONS [Concomitant]
     Route: 065
  6. SINUS MEDICATIONS [Concomitant]
     Indication: SINUS DISORDER
     Route: 065

REACTIONS (3)
  - ALOPECIA [None]
  - GASTROOESOPHAGEAL REFLUX DISEASE [None]
  - NECK INJURY [None]
